FAERS Safety Report 5352440-4 (Version None)
Quarter: 2007Q2

REPORT INFORMATION
  Report Type: 
  Country: None (occurrence: None)
  Receive Date: 20070611
  Receipt Date: 20070606
  Transmission Date: 20071010
  Serious: Yes (Hospitalization)
  Sender: FDA-Public Use
  Company Number: A0654404A

PATIENT
  Age: 60 Year
  Sex: Female

DRUGS (7)
  1. AVANDIA [Suspect]
     Dosage: 8MG PER DAY
     Route: 048
     Dates: start: 20001001
  2. UNSPECIFIED MEDICATION [Concomitant]
  3. POTASSIUM ACETATE [Concomitant]
  4. XANAX [Concomitant]
  5. NEXIUM [Concomitant]
  6. GLUCOPHAGE [Concomitant]
  7. SPIRONOLACTONE [Concomitant]

REACTIONS (4)
  - CHEST PAIN [None]
  - DYSPNOEA [None]
  - OEDEMA PERIPHERAL [None]
  - WEIGHT INCREASED [None]
